FAERS Safety Report 10650249 (Version 1)
Quarter: 2014Q4

REPORT INFORMATION
  Report Type: Spontaneous
  Country: GB (occurrence: GB)
  Receive Date: 20141212
  Receipt Date: 20141212
  Transmission Date: 20150529
  Serious: Yes (Life-Threatening, Other)
  Sender: FDA-Public Use
  Company Number: GB-GLAXOSMITHKLINE-GB2014033993

PATIENT

DRUGS (1)
  1. ZYBAN [Suspect]
     Active Substance: BUPROPION HYDROCHLORIDE
     Indication: SMOKING CESSATION THERAPY
     Route: 048
     Dates: start: 20140926, end: 20141020

REACTIONS (7)
  - Flat affect [Recovering/Resolving]
  - Aggression [Recovering/Resolving]
  - Suicidal ideation [Recovering/Resolving]
  - Paranoia [Recovering/Resolving]
  - Insomnia [Recovering/Resolving]
  - Anger [Recovering/Resolving]
  - Self injurious behaviour [Recovering/Resolving]

NARRATIVE: CASE EVENT DATE: 20140930
